FAERS Safety Report 9943212 (Version 2)
Quarter: 2014Q1

REPORT INFORMATION
  Report Type: Spontaneous
  Country: DE (occurrence: DE)
  Receive Date: 20140303
  Receipt Date: 20140320
  Transmission Date: 20141002
  Serious: Yes (Hospitalization)
  Sender: FDA-Public Use
  Company Number: DE-B.I. PHARMACEUTICALS,INC./RIDGEFIELD-2014-BI-09169DE

PATIENT
  Age: 73 Year
  Sex: Female
  Weight: 99 kg

DRUGS (5)
  1. PRADAXA [Suspect]
     Indication: ATRIAL FIBRILLATION
     Dosage: 220 MG
     Route: 065
     Dates: start: 20110915, end: 20130227
  2. BISOPROLOL 5 [Concomitant]
     Indication: HYPERTENSION
     Dosage: 7.5 MG
     Route: 065
     Dates: start: 20081107
  3. ENALAPRIL 10 [Concomitant]
     Indication: HYPERTENSION
     Dosage: 20 MG
     Route: 065
     Dates: start: 20090604
  4. TILIDIN 150/12MG [Concomitant]
     Indication: OSTEOARTHRITIS
     Dosage: 450 MG
     Route: 065
     Dates: start: 20120424
  5. TILIDIN 150/12MG [Concomitant]
     Indication: PAIN

REACTIONS (1)
  - Hypersensitivity vasculitis [Recovered/Resolved]
